FAERS Safety Report 6186302-X (Version None)
Quarter: 2009Q2

REPORT INFORMATION
  Report Type: 
  Country: None (occurrence: None)
  Receive Date: 20090507
  Receipt Date: 20090507
  Transmission Date: 20091009
  Serious: Yes (Life-Threatening, Hospitalization)
  Sender: FDA-Public Use
  Company Number: None

PATIENT
  Age: 59 Year
  Sex: Female
  Weight: 62.5964 kg

DRUGS (3)
  1. ABILIFY [Suspect]
     Indication: BIPOLAR DISORDER
     Dosage: 2MG DAILY PO
     Route: 048
     Dates: start: 20080101, end: 20081103
  2. ABILIFY [Suspect]
     Indication: DEPRESSION
     Dosage: 2MG DAILY PO
     Route: 048
     Dates: start: 20080101, end: 20081103
  3. ABILIFY [Suspect]
     Dosage: 15MG DAILY PO
     Route: 048

REACTIONS (5)
  - ANXIETY [None]
  - FALL [None]
  - MYOCARDIAL INFARCTION [None]
  - RENAL IMPAIRMENT [None]
  - RHABDOMYOLYSIS [None]
